FAERS Safety Report 9669113 (Version 1)
Quarter: 2013Q4

REPORT INFORMATION
  Report Type: Spontaneous
  Country: US (occurrence: US)
  Receive Date: 20131105
  Receipt Date: 20131105
  Transmission Date: 20140711
  Serious: Yes (Other)
  Sender: FDA-Public Use
  Company Number: US-ASTELLAS-2013US011357

PATIENT
  Sex: Female
  Weight: 82 kg

DRUGS (14)
  1. QUETIAPINE FUMARATE [Concomitant]
     Indication: PSYCHOTIC DISORDER
     Dosage: 400 MG, QHS
     Route: 048
  2. CLONAZEPAM [Concomitant]
     Indication: ANXIETY
     Dosage: 1 MG, TID
     Route: 048
  3. TRAZODONE HYDROCHLORIDE [Concomitant]
     Indication: PRODUCT USED FOR UNKNOWN INDICATION
     Dosage: 200 MG, QHS
     Route: 048
  4. PROPRANOLOL [Concomitant]
     Indication: ANXIETY
     Dosage: 10 MG, UID/QD
     Route: 048
  5. RAPAFLO [Concomitant]
     Indication: CYSTITIS INTERSTITIAL
     Dosage: 8 MG, UID/QD
     Route: 048
  6. ELMIRON [Concomitant]
     Indication: CYSTITIS INTERSTITIAL
     Dosage: 100 MG, BID
     Route: 048
  7. JUNEL FE 1/20 [Concomitant]
     Indication: CONTRACEPTION
     Dosage: 1 DF, UID/QD
     Route: 048
  8. NEXIUM                             /01479302/ [Concomitant]
     Indication: PRODUCT USED FOR UNKNOWN INDICATION
     Dosage: 40 MG, BID
     Route: 048
  9. VESICARE [Suspect]
     Indication: PRODUCT USED FOR UNKNOWN INDICATION
     Dosage: 10 MG, UID/QD
     Route: 048
  10. OXYTROL [Concomitant]
     Indication: HYPERTONIC BLADDER
     Dosage: 1 DF, EVERY 4 DAYS
     Route: 065
  11. TRAMADOL [Concomitant]
     Indication: PAIN
     Dosage: 60 MG, Q6 HOURS
     Route: 048
  12. TERAZOSIN [Concomitant]
     Indication: PRODUCT USED FOR UNKNOWN INDICATION
     Dosage: 2 MG, UID/QD
     Route: 048
  13. ESCITALOPRAM OXALATE [Concomitant]
     Indication: DEPRESSION
     Dosage: 30 MG, UID/QD
     Route: 048
  14. PHENAZOPYRIDINE [Concomitant]
     Indication: URINARY TRACT PAIN
     Dosage: 200 MG, TID
     Route: 048

REACTIONS (1)
  - Cystitis interstitial [Unknown]
